FAERS Safety Report 9380406 (Version 1)
Quarter: 2013Q2

REPORT INFORMATION
  Report Type: Spontaneous
  Country: US (occurrence: None)
  Receive Date: 20130628
  Receipt Date: 20130628
  Transmission Date: 20140414
  Serious: Yes (Other)
  Sender: FDA-Public Use
  Company Number: 2013GMK006009

PATIENT
  Age: 48 Year
  Sex: Female

DRUGS (1)
  1. CITALOPRAM HYDROBROMIDE (CITALOPRAM HYDROBROMIDE) [Suspect]
     Indication: DEPRESSION

REACTIONS (4)
  - Hypertension [None]
  - Restlessness [None]
  - Irritability [None]
  - Headache [None]
